FAERS Safety Report 10049780 (Version 2)
Quarter: 2014Q2

REPORT INFORMATION
  Report Type: Spontaneous
  Country: IT (occurrence: IT)
  Receive Date: 20140401
  Receipt Date: 20140415
  Transmission Date: 20141212
  Serious: Yes (Other)
  Sender: FDA-Public Use
  Company Number: IT-MYLANLABS-2014S1006441

PATIENT
  Age: 90 Year
  Sex: Male
  Weight: 61 kg

DRUGS (2)
  1. QUETIAPINE [Suspect]
     Indication: DEPRESSION
     Route: 048
     Dates: start: 20130820, end: 20140122
  2. TRITTICO [Suspect]
     Indication: DEPRESSION
     Route: 048
     Dates: start: 20130820, end: 20140122

REACTIONS (1)
  - Jaundice [Recovered/Resolved]
